FAERS Safety Report 26014648 (Version 2)
Quarter: 2025Q4

REPORT INFORMATION
  Report Type: Spontaneous
  Country: JP (occurrence: JP)
  Receive Date: 20251108
  Receipt Date: 20251201
  Transmission Date: 20260118
  Serious: Yes (Hospitalization)
  Sender: ROCHE
  Company Number: JP-CHEPLA-2025012378

PATIENT
  Age: 9 Day
  Sex: Female

DRUGS (20)
  1. GANCICLOVIR [Suspect]
     Active Substance: GANCICLOVIR
     Indication: Congenital cytomegalovirus infection
     Dosage: IV INFUSION; 2.5 MG/DAY ONCE DAILY (S.I.D.)
     Route: 042
     Dates: start: 20231026
  2. GANCICLOVIR [Suspect]
     Active Substance: GANCICLOVIR
     Dosage: IV INFUSION; INCREASED TO 3.0 MG/DAY (S.I.D.)
     Route: 042
  3. VALGANCICLOVIR HYDROCHLORIDE [Suspect]
     Active Substance: VALGANCICLOVIR HYDROCHLORIDE
     Indication: Congenital cytomegalovirus infection
     Dosage: DRY SYRUP; 10 MG/DAY (S.I.D.)
     Route: 048
     Dates: start: 20231122
  4. VALGANCICLOVIR HYDROCHLORIDE [Suspect]
     Active Substance: VALGANCICLOVIR HYDROCHLORIDE
     Dosage: DRY SYRUP; 12.5 MG/DAY (S.I.D.)
     Route: 048
     Dates: start: 20231205
  5. VALGANCICLOVIR HYDROCHLORIDE [Suspect]
     Active Substance: VALGANCICLOVIR HYDROCHLORIDE
     Dosage: DRY SYRUP; 15 MG/DAY TWICE DAILY (B.I.D.)
     Route: 048
     Dates: start: 20231213
  6. VALGANCICLOVIR HYDROCHLORIDE [Suspect]
     Active Substance: VALGANCICLOVIR HYDROCHLORIDE
     Dosage: DRY SYRUP; 25 MG/DAY, FURTHER TREATMENT PERIODS AT THE SAME DOSE STARTED ON 16-JAN-2024
     Route: 048
     Dates: start: 20231228
  7. VALGANCICLOVIR HYDROCHLORIDE [Suspect]
     Active Substance: VALGANCICLOVIR HYDROCHLORIDE
     Dosage: DRY SYRUP; 35 MG/DAY (B.I.D.)
     Route: 048
     Dates: start: 20240116
  8. VALGANCICLOVIR HYDROCHLORIDE [Suspect]
     Active Substance: VALGANCICLOVIR HYDROCHLORIDE
     Dosage: DRY SYRUP; RESUMED AT PNA 91
     Route: 048
     Dates: start: 20240126
  9. ALFACALCIDOL [Concomitant]
     Active Substance: ALFACALCIDOL
     Dates: start: 20231113
  10. Atractylodes Lancea Rhizome [Concomitant]
     Dates: start: 20240207
  11. Citrus X Aurantium Peel [Concomitant]
     Dates: start: 20240207
  12. Glycyrrhiza Spp [Concomitant]
     Dates: start: 20240207
  13. ASIAN GINSENG [Concomitant]
     Active Substance: ASIAN GINSENG
     Dates: start: 20240207
  14. Pinellia Ternata Tuber [Concomitant]
     Dates: start: 20240207
  15. Poria Cocos Sclerotium [Concomitant]
     Dates: start: 20240207
  16. Zingiber Officinale Rhizome [Concomitant]
     Dates: start: 20240207
  17. Ziziphus Jujuba Fruit [Concomitant]
     Dates: start: 20240207
  18. FERRIC PYROPHOSPHATE [Concomitant]
     Active Substance: FERRIC PYROPHOSPHATE
     Dates: start: 20231102
  19. Zanthoxylum Piperitum Pericarp [Concomitant]
     Dates: start: 20231208
  20. Zingiber Officinale Processed Rhizome [Concomitant]
     Dates: start: 20231208

REACTIONS (2)
  - Neutropenia [Recovered/Resolved]
  - Off label use [Unknown]

NARRATIVE: CASE EVENT DATE: 20240213
